FAERS Safety Report 10555395 (Version 3)
Quarter: 2015Q2

REPORT INFORMATION
  Report Type: Spontaneous
  Country: US (occurrence: US)
  Receive Date: 20141030
  Receipt Date: 20150504
  Transmission Date: 20150821
  Serious: Yes (Hospitalization, Other)
  Sender: FDA-Public Use
  Company Number: US-BAYER-2014-159318

PATIENT
  Age: 28 Year
  Sex: Female
  Weight: 61.22 kg

DRUGS (4)
  1. TOPAMAX [Concomitant]
     Active Substance: TOPIRAMATE
  2. MIRENA [Suspect]
     Active Substance: LEVONORGESTREL
     Indication: CONTRACEPTION
     Dosage: 20 MCG/24HR, CONT
     Route: 015
     Dates: start: 20051105, end: 20071127
  3. CELEXA [Concomitant]
     Active Substance: CITALOPRAM HYDROBROMIDE
     Dosage: UNK
     Dates: start: 199902
  4. ADDERALL [Concomitant]
     Active Substance: AMPHETAMINE ASPARTATE\AMPHETAMINE SULFATE\DEXTROAMPHETAMINE SACCHARATE\DEXTROAMPHETAMINE SULFATE
     Dosage: UNK
     Dates: start: 199902

REACTIONS (19)
  - Internal injury [None]
  - Depression [None]
  - Fatigue [None]
  - Injury [None]
  - Blood urine present [None]
  - Activities of daily living impaired [None]
  - Uterine perforation [None]
  - Device breakage [None]
  - Pelvic pain [None]
  - Emotional distress [None]
  - Medical device discomfort [None]
  - Anxiety [None]
  - Complication of device removal [None]
  - Abdominal pain [None]
  - Genital haemorrhage [None]
  - Gastric disorder [None]
  - Depressed mood [None]
  - Abdominal pain upper [None]
  - Fear [None]

NARRATIVE: CASE EVENT DATE: 200610
